FAERS Safety Report 7030982-3 (Version None)
Quarter: 2010Q4

REPORT INFORMATION
  Report Type: 
  Country: None (occurrence: None)
  Receive Date: 20101006
  Receipt Date: 20100305
  Transmission Date: 20110411
  Serious: No
  Sender: FDA-Public Use
  Company Number: US-BRISTOL-MYERS SQUIBB COMPANY-14981385

PATIENT
  Age: 39 Year
  Sex: Female
  Weight: 59 kg

DRUGS (2)
  1. KENALOG-40 [Suspect]
     Indication: HERPES SIMPLEX
     Route: 030
     Dates: start: 20090917, end: 20090917
  2. KENALOG-40 [Suspect]
     Indication: ORAL HERPES
     Route: 030
     Dates: start: 20090917, end: 20090917

REACTIONS (4)
  - ALOPECIA [None]
  - EMOTIONAL DISORDER [None]
  - HAIR GROWTH ABNORMAL [None]
  - PALPITATIONS [None]
